APPROVED DRUG PRODUCT: FURADANTIN
Active Ingredient: NITROFURANTOIN
Strength: 25MG/5ML
Dosage Form/Route: SUSPENSION;ORAL
Application: N009175 | Product #001 | TE Code: AB
Applicant: CASPER PHARMA LLC
Approved: Approved Prior to Jan 1, 1982 | RLD: Yes | RS: No | Type: RX